FAERS Safety Report 5744496-1 (Version None)
Quarter: 2008Q2

REPORT INFORMATION
  Report Type: 
  Country: None (occurrence: None)
  Receive Date: 20080516
  Receipt Date: 20080501
  Transmission Date: 20081010
  Serious: Yes (Congenital Anomaly)
  Sender: FDA-Public Use
  Company Number: 8032305

PATIENT
  Sex: Female

DRUGS (1)
  1. KEPPRA [Suspect]
     Dosage: NI IUT
     Route: 015

REACTIONS (4)
  - ANKYLOGLOSSIA CONGENITAL [None]
  - CONGENITAL HAND MALFORMATION [None]
  - HIGH ARCHED PALATE [None]
  - MATERNAL DRUGS AFFECTING FOETUS [None]
